FAERS Safety Report 23133874 (Version 1)
Quarter: 2023Q4

REPORT INFORMATION
  Report Type: Spontaneous
  Country: US (occurrence: None)
  Receive Date: 20231031
  Receipt Date: 20231031
  Transmission Date: 20240110
  Serious: Yes (Other)
  Sender: FDA-Public Use
  Company Number: None

PATIENT
  Sex: Female

DRUGS (17)
  1. BOTOX [Suspect]
     Active Substance: ONABOTULINUMTOXINA
     Indication: Migraine
     Dosage: OTHER STRENGTH : 100 UNIT ;?OTHER QUANTITY : 100 UNIT ;?ADMINISTER 155 UNITS IN THE MUSCLE PER ALLER
     Dates: start: 20210720
  2. AMPHET/DEXTR TAB [Concomitant]
  3. ATORVASTATIN [Concomitant]
     Active Substance: ATORVASTATIN
  4. BACLOFEN TAB [Concomitant]
  5. BUPROPION TAB [Concomitant]
  6. DESVENLAFAX TAB [Concomitant]
  7. GABAPENTIN [Concomitant]
     Active Substance: GABAPENTIN
  8. LAMOTRIGINE [Concomitant]
     Active Substance: LAMOTRIGINE
  9. MICROCESTIN TAB FE FE 1/20 [Concomitant]
  10. MIRTAZAPINE TAB [Concomitant]
  11. NAPROXEN TAB [Concomitant]
  12. SIMVASTATIN [Concomitant]
     Active Substance: SIMVASTATIN
  13. TRAMADOL HCL TAB [Concomitant]
  14. TRIAMCINOLON PST DEN [Concomitant]
  15. TROKENDI XR CAP [Concomitant]
  16. TYLENOL TAB [Concomitant]
  17. ZIPRASIDONE CAP [Concomitant]

REACTIONS (1)
  - Brain neoplasm benign [None]
